FAERS Safety Report 9239676 (Version 3)
Quarter: 2013Q4

REPORT INFORMATION
  Report Type: Spontaneous
  Country: US (occurrence: US)
  Receive Date: 20130418
  Receipt Date: 20131008
  Transmission Date: 20140711
  Serious: Yes (Other)
  Sender: FDA-Public Use
  Company Number: US-PFIZER INC-2013121110

PATIENT
  Age: 81 Year
  Sex: Female
  Weight: 46 kg

DRUGS (2)
  1. DILANTIN [Suspect]
     Indication: CONVULSION
     Dosage: 260 MG, 1X/DAY
     Route: 048
     Dates: start: 1975
  2. KEPPRA [Suspect]
     Indication: CONVULSION
     Dosage: UNK
     Dates: start: 1998

REACTIONS (1)
  - Drug ineffective [Unknown]
